FAERS Safety Report 17751181 (Version 3)
Quarter: 2020Q4

REPORT INFORMATION
  Report Type: Spontaneous
  Country: US (occurrence: US)
  Receive Date: 20200506
  Receipt Date: 20201106
  Transmission Date: 20210113
  Serious: Yes (Hospitalization, Other)
  Sender: FDA-Public Use
  Company Number: US-PFIZER INC-2020181077

PATIENT
  Age: 77 Year
  Sex: Female

DRUGS (1)
  1. XELJANZ XR [Suspect]
     Active Substance: TOFACITINIB CITRATE
     Indication: RHEUMATOID ARTHRITIS
     Dosage: 11 MG, 1X/DAY
     Route: 048
     Dates: start: 2019

REACTIONS (9)
  - Atrial fibrillation [Unknown]
  - Pyrexia [Unknown]
  - Liver disorder [Unknown]
  - Liver function test increased [Unknown]
  - Pneumonia [Unknown]
  - Back disorder [Unknown]
  - Pain [Unknown]
  - Discouragement [Recovering/Resolving]
  - Respiratory syncytial virus infection [Unknown]

NARRATIVE: CASE EVENT DATE: 202002
